FAERS Safety Report 4683087-0 (Version None)
Quarter: 2005Q2

REPORT INFORMATION
  Report Type: 
  Country: None (occurrence: None)
  Receive Date: 20050602
  Receipt Date: 20050421
  Transmission Date: 20051028
  Serious: Yes (Other)
  Sender: FDA-Public Use
  Company Number: USA050394069

PATIENT
  Age: 29 Year
  Sex: Female
  Weight: 62 kg

DRUGS (3)
  1. CYMBALTA [Suspect]
     Indication: DEPRESSION
     Dosage: 20 MG/TWICE DAY
     Dates: start: 20050215, end: 20050322
  2. PRILOSEC (OMEPRAZOLE RATIOPHARM) [Concomitant]
  3. PRENATAL VITAMINS [Concomitant]

REACTIONS (3)
  - AMBLYOPIA [None]
  - EYELID PTOSIS [None]
  - RETINAL DETACHMENT [None]
